FAERS Safety Report 21292980 (Version 1)
Quarter: 2022Q3

REPORT INFORMATION
  Report Type: Spontaneous
  Country: FR (occurrence: FR)
  Receive Date: 20220905
  Receipt Date: 20220905
  Transmission Date: 20221027
  Serious: Yes (Death)
  Sender: FDA-Public Use
  Company Number: None

PATIENT
  Age: 46 Year
  Sex: Male

DRUGS (3)
  1. CISPLATIN [Suspect]
     Active Substance: CISPLATIN
     Indication: Metastatic bronchial carcinoma
     Dosage: C2 , UNIT DOSE : 117 MG , FREQUENCY TIME : 1 CYCLICAL ,  THERAPY  END DATE : NASK
     Dates: start: 20220727
  2. KEYTRUDA [Suspect]
     Active Substance: PEMBROLIZUMAB
     Indication: Metastatic bronchial carcinoma
     Dosage: C2 , UNIT DOSE : 200 MG ,  THERAPY  END DATE : NASK
     Dates: start: 20220727
  3. ALIMTA [Suspect]
     Active Substance: PEMETREXED DISODIUM
     Indication: Metastatic bronchial carcinoma
     Dosage: C2 , UNIT DOSE : 775 MG , FREQUENCY TIME : 1 CYCLICAL ,  THERAPY  END DATE : NASK
     Dates: start: 20220727

REACTIONS (2)
  - Pancytopenia [Fatal]
  - Colitis [Fatal]

NARRATIVE: CASE EVENT DATE: 20220804
